FAERS Safety Report 9147833 (Version 1)
Quarter: 2013Q1

REPORT INFORMATION
  Report Type: Spontaneous
  Country: SE (occurrence: SE)
  Receive Date: 20130307
  Receipt Date: 20130307
  Transmission Date: 20140127
  Serious: Yes (Hospitalization)
  Sender: FDA-Public Use
  Company Number: SE-ABBOTT-13P-150-1053767-00

PATIENT
  Age: 19 Year
  Sex: Female

DRUGS (1)
  1. HUMIRA [Suspect]
     Indication: CROHN^S DISEASE
     Dates: start: 20121114, end: 201302

REACTIONS (10)
  - Eye swelling [Recovering/Resolving]
  - Sinusitis [Recovering/Resolving]
  - Pharyngeal oedema [Recovering/Resolving]
  - Infection [Recovering/Resolving]
  - Injection site swelling [Not Recovered/Not Resolved]
  - Pruritus [Not Recovered/Not Resolved]
  - Dizziness [Recovered/Resolved]
  - Injection site swelling [Recovered/Resolved]
  - Pruritus generalised [Recovered/Resolved]
  - Dizziness [Recovered/Resolved]
